FAERS Safety Report 7092665-3 (Version None)
Quarter: 2010Q4

REPORT INFORMATION
  Report Type: 
  Country: None (occurrence: None)
  Receive Date: 20101110
  Receipt Date: 20101029
  Transmission Date: 20110411
  Serious: Yes (Other)
  Sender: FDA-Public Use
  Company Number: US-JNJFOC-20100805914

PATIENT
  Sex: Female

DRUGS (1)
  1. LEVAQUIN [Suspect]
     Indication: PRE-EXISTING DISEASE
     Route: 048

REACTIONS (3)
  - JOINT INJURY [None]
  - JOINT SPRAIN [None]
  - TENDON RUPTURE [None]
